FAERS Safety Report 8772875 (Version 1)
Quarter: 2012Q4

REPORT INFORMATION
  Report Type: Report from Study
  Country: ZW (occurrence: ZW)
  Receive Date: 20120907
  Receipt Date: 20120907
  Transmission Date: 20130627
  Serious: Yes (Death, Hospitalization)
  Sender: FDA-Public Use
  Company Number: ZW-ABBOTT-12P-190-0975866-00

PATIENT
  Age: 43 Year
  Sex: Male

DRUGS (5)
  1. ALUVIA [Suspect]
     Indication: HIV INFECTION
     Route: 048
     Dates: start: 20100819, end: 20120822
  2. ABACAVIR [Concomitant]
     Indication: HIV INFECTION
     Dates: start: 20100819, end: 20120822
  3. DIDANOSINE [Concomitant]
     Indication: HIV INFECTION
     Dates: start: 20100819, end: 20120822
  4. COTRIMOXAZOLE [Concomitant]
     Indication: PRODUCT USED FOR UNKNOWN INDICATION
     Dates: start: 20070901, end: 20120822
  5. AMITRIPTYLINE [Concomitant]
     Indication: PRODUCT USED FOR UNKNOWN INDICATION
     Dates: start: 20111110, end: 20120822

REACTIONS (1)
  - Death [Fatal]
